FAERS Safety Report 20847162 (Version 1)
Quarter: 2022Q2

REPORT INFORMATION
  Report Type: Spontaneous
  Country: GB (occurrence: GB)
  Receive Date: 20220519
  Receipt Date: 20220519
  Transmission Date: 20220721
  Serious: Yes (Hospitalization, Other)
  Sender: FDA-Public Use
  Company Number: GB-NOVOPROD-917203

PATIENT
  Sex: Female

DRUGS (1)
  1. TRESIBA [Suspect]
     Active Substance: INSULIN DEGLUDEC
     Indication: Type 1 diabetes mellitus
     Dosage: UNK
     Route: 065
     Dates: start: 202203

REACTIONS (3)
  - Cardiac arrest [Unknown]
  - Diabetic ketoacidosis [Unknown]
  - Device failure [Unknown]

NARRATIVE: CASE EVENT DATE: 20220327
